FAERS Safety Report 25401797 (Version 1)
Quarter: 2025Q2

REPORT INFORMATION
  Report Type: Spontaneous
  Country: US (occurrence: US)
  Receive Date: 20250605
  Receipt Date: 20250605
  Transmission Date: 20250716
  Serious: No
  Sender: MYLAN
  Company Number: US-MYLANLABS-2025M1044608

PATIENT
  Sex: Female

DRUGS (1)
  1. LATANOPROST [Suspect]
     Active Substance: LATANOPROST
     Indication: Eye disorder

REACTIONS (3)
  - Off label use [Unknown]
  - Product storage error [Unknown]
  - Product packaging quantity issue [Unknown]
